FAERS Safety Report 8670252 (Version 3)
Quarter: 2013Q4

REPORT INFORMATION
  Report Type: Spontaneous
  Country: US (occurrence: US)
  Receive Date: 20120718
  Receipt Date: 20131101
  Transmission Date: 20140711
  Serious: No
  Sender: FDA-Public Use
  Company Number: US-009507513-1207USA004498

PATIENT
  Age: 64 Year
  Sex: Male

DRUGS (3)
  1. VICTRELIS [Suspect]
     Indication: HEPATITIS C
     Dosage: 800 MG, TID
     Route: 048
     Dates: start: 20111006
  2. PEGINTRON [Suspect]
     Dosage: UNK, UNKNOWN
  3. RIBASPHERE [Suspect]
     Dosage: UNK, UNKNOWN

REACTIONS (1)
  - Gouty arthritis [Unknown]
